FAERS Safety Report 8122704-X (Version None)
Quarter: 2012Q1

REPORT INFORMATION
  Report Type: 
  Country: None (occurrence: None)
  Receive Date: 20120208
  Receipt Date: 20120127
  Transmission Date: 20120608
  Serious: No
  Sender: FDA-Public Use
  Company Number: US-BIOGENIDEC-2011BI040140

PATIENT
  Age: 46 Year
  Sex: Female

DRUGS (2)
  1. TYSABRI [Suspect]
     Indication: MULTIPLE SCLEROSIS
     Route: 042
     Dates: start: 20111011
  2. AVONEX [Concomitant]
     Indication: MULTIPLE SCLEROSIS
     Route: 030
     Dates: start: 20081017

REACTIONS (12)
  - APATHY [None]
  - SOMNOLENCE [None]
  - PARAESTHESIA [None]
  - EYE DISORDER [None]
  - MUSCULAR WEAKNESS [None]
  - FATIGUE [None]
  - FALL [None]
  - BURNING SENSATION [None]
  - BALANCE DISORDER [None]
  - MUSCULOSKELETAL DISORDER [None]
  - ABNORMAL SENSATION IN EYE [None]
  - HYPOAESTHESIA [None]
